FAERS Safety Report 4479218-8 (Version None)
Quarter: 2004Q4

REPORT INFORMATION
  Report Type: 
  Country: None (occurrence: None)
  Receive Date: 20041020
  Receipt Date: 20041007
  Transmission Date: 20050328
  Serious: Yes (Hospitalization, Disabling, Other)
  Sender: FDA-Public Use
  Company Number: NO-JNJFOC-20040907937

PATIENT
  Sex: Female
  Weight: 46 kg

DRUGS (12)
  1. REMICADE [Suspect]
     Route: 042
  2. REMICADE [Suspect]
     Indication: RHEUMATOID ARTHRITIS
     Route: 042
  3. METHOTREXATE [Concomitant]
     Indication: RHEUMATOID ARTHRITIS
     Route: 049
  4. FOLIC ACID [Concomitant]
     Route: 049
  5. PREDNISOLONE [Concomitant]
     Route: 049
  6. PINEX FORTE [Concomitant]
     Route: 049
  7. PINEX FORTE [Concomitant]
     Route: 049
  8. VIVAL [Concomitant]
     Route: 049
  9. IMOVANE [Concomitant]
     Route: 049
  10. ZOCOR [Concomitant]
     Route: 049
  11. ZYRTEC [Concomitant]
     Route: 049
  12. TEGRETOL [Concomitant]
     Route: 049

REACTIONS (1)
  - MONOPLEGIA [None]
